FAERS Safety Report 8778633 (Version 2)
Quarter: 2012Q4

REPORT INFORMATION
  Report Type: 
  Country: CN (occurrence: CN)
  Receive Date: 20120912
  Receipt Date: 20120923
  Transmission Date: 20130627
  Serious: Yes (Other)
  Sender: FDA-Public Use
  Company Number: CN-ABBOTT-12P-035-0969686-00

PATIENT
  Age: 62 Year
  Sex: Male

DRUGS (13)
  1. PROPAFENONE [Suspect]
     Indication: PRODUCT USED FOR UNKNOWN INDICATION
     Route: 042
  2. PROPAFENONE [Suspect]
     Dosage: Trial doses
  3. PROPAFENONE [Suspect]
     Route: 042
     Dates: start: 19890623
  4. PROPAFENONE [Suspect]
     Route: 048
  5. PROPAFENONE [Suspect]
     Dosage: 200 mg every 6-8 hours
  6. DIURETICS [Concomitant]
     Indication: PRODUCT USED FOR UNKNOWN INDICATION
  7. QUINIDINE [Concomitant]
     Indication: PRODUCT USED FOR UNKNOWN INDICATION
  8. DIAZEPAM [Concomitant]
     Indication: PRODUCT USED FOR UNKNOWN INDICATION
  9. DYPHYLLINE [Concomitant]
     Indication: PRODUCT USED FOR UNKNOWN INDICATION
  10. PROPRANOLOL [Concomitant]
     Indication: PRODUCT USED FOR UNKNOWN INDICATION
  11. DIGOXIN [Concomitant]
     Indication: PRODUCT USED FOR UNKNOWN INDICATION
  12. OXYGEN [Concomitant]
     Indication: PRODUCT USED FOR UNKNOWN INDICATION
  13. VASODILATORS [Concomitant]
     Indication: PRODUCT USED FOR UNKNOWN INDICATION

REACTIONS (4)
  - Haemolysis [Recovered/Resolved]
  - Type III immune complex mediated reaction [Recovered/Resolved]
  - Shock [Recovered/Resolved]
  - Acute left ventricular failure [Recovered/Resolved]
